FAERS Safety Report 5497094-1 (Version None)
Quarter: 2007Q4

REPORT INFORMATION
  Report Type: 
  Country: None (occurrence: None)
  Receive Date: 20071025
  Receipt Date: 20071012
  Transmission Date: 20080405
  Serious: Yes (Death)
  Sender: FDA-Public Use
  Company Number: JP-MERCK-0710USA03070

PATIENT
  Age: 62 Year
  Sex: Male

DRUGS (4)
  1. PRIMAXIN [Suspect]
     Route: 041
     Dates: start: 20060401, end: 20060101
  2. [THERAPY UNSPECIFIED] [Suspect]
     Route: 065
  3. [THERAPY UNSPECIFIED] [Suspect]
     Route: 065
  4. [THERAPY UNSPECIFIED] [Suspect]
     Route: 065

REACTIONS (2)
  - GASTROINTESTINAL HAEMORRHAGE [None]
  - TOXIC EPIDERMAL NECROLYSIS [None]
